FAERS Safety Report 13919917 (Version 1)
Quarter: 2017Q3

REPORT INFORMATION
  Report Type: Spontaneous
  Country: US (occurrence: US)
  Receive Date: 20170829
  Receipt Date: 20170829
  Transmission Date: 20171127
  Serious: Yes (Other)
  Sender: FDA-Public Use
  Company Number: None

PATIENT
  Age: 86 Year
  Sex: Male
  Weight: 86.85 kg

DRUGS (16)
  1. ZYTIGA [Suspect]
     Active Substance: ABIRATERONE ACETATE
     Indication: PROSTATE CANCER
     Route: 048
     Dates: start: 20170703
  2. FUROSEMIDE. [Concomitant]
     Active Substance: FUROSEMIDE
  3. TRIAMCINOLONE ACETONIDE. [Concomitant]
     Active Substance: TRIAMCINOLONE ACETONIDE
  4. LISINOPRIL. [Concomitant]
     Active Substance: LISINOPRIL
  5. LOPRESSOR [Concomitant]
     Active Substance: METOPROLOL TARTRATE
  6. OXYCODONE [Concomitant]
     Active Substance: OXYCODONE
  7. PRILOSEC [Concomitant]
     Active Substance: OMEPRAZOLE MAGNESIUM
  8. WARFARIN [Concomitant]
     Active Substance: WARFARIN
  9. SIMVASTATIN. [Concomitant]
     Active Substance: SIMVASTATIN
  10. AMLODIPINE [Concomitant]
     Active Substance: AMLODIPINE BESYLATE
  11. OSCAL [Concomitant]
     Active Substance: CALCIUM CARBONATE
  12. KLOR-CON [Concomitant]
     Active Substance: POTASSIUM CHLORIDE
  13. DOCUSATE [Concomitant]
     Active Substance: DOCUSATE
  14. BICALUTAMIDE. [Concomitant]
     Active Substance: BICALUTAMIDE
  15. ACETAMINOPHEN. [Concomitant]
     Active Substance: ACETAMINOPHEN
  16. PREDNISONE. [Concomitant]
     Active Substance: PREDNISONE

REACTIONS (1)
  - Fatigue [None]
